FAERS Safety Report 6276317-5 (Version None)
Quarter: 2009Q3

REPORT INFORMATION
  Report Type: 
  Country: None (occurrence: None)
  Receive Date: 20090720
  Receipt Date: 20090720
  Transmission Date: 20100115
  Serious: No
  Sender: FDA-Public Use
  Company Number: None

PATIENT
  Age: 49 Year
  Sex: Male

DRUGS (1)
  1. MINIMED PARAD QKSET 6MM 23^10 - MMT399 MEDTRONIC [Suspect]
     Indication: DIABETES MELLITUS
     Dosage: USE AS DIRECTED

REACTIONS (1)
  - BLOOD GLUCOSE INCREASED [None]
